FAERS Safety Report 12692949 (Version 6)
Quarter: 2017Q2

REPORT INFORMATION
  Report Type: Report from Study
  Country: BR (occurrence: BR)
  Receive Date: 20160829
  Receipt Date: 20170607
  Transmission Date: 20170830
  Serious: Yes (Death, Hospitalization, Other)
  Sender: FDA-Public Use
  Company Number: PHHY2016BR116715

PATIENT
  Sex: Female
  Weight: 70 kg

DRUGS (1)
  1. EXJADE [Suspect]
     Active Substance: DEFERASIROX
     Indication: MYELODYSPLASTIC SYNDROME
     Dosage: 1000 (2 X 500) MG, QD
     Route: 048

REACTIONS (24)
  - Pulmonary oedema [Unknown]
  - Anaemia [Unknown]
  - Blood glucose fluctuation [Unknown]
  - Memory impairment [Unknown]
  - Unevaluable event [Unknown]
  - Blood glucose decreased [Recovering/Resolving]
  - Septic shock [Unknown]
  - Wound [Unknown]
  - Back injury [Unknown]
  - Cardiac failure [Unknown]
  - Hyperglycaemia [Unknown]
  - Weight decreased [Unknown]
  - Asthenia [Unknown]
  - Bacterial infection [Unknown]
  - Blood disorder [Unknown]
  - Fear of falling [Unknown]
  - Fall [Unknown]
  - Headache [Unknown]
  - Dyspnoea [Fatal]
  - Diabetes mellitus [Unknown]
  - Cardiac arrest [Unknown]
  - Hypertension [Unknown]
  - Respiratory tract infection [Unknown]
  - Infection [Unknown]
